FAERS Safety Report 23968127 (Version 1)
Quarter: 2024Q2

REPORT INFORMATION
  Report Type: Spontaneous
  Country: ES (occurrence: ES)
  Receive Date: 20240612
  Receipt Date: 20240612
  Transmission Date: 20240716
  Serious: Yes (Other)
  Sender: FDA-Public Use
  Company Number: ES-BEH-2024173478

PATIENT
  Age: 49 Year
  Sex: Male

DRUGS (5)
  1. IDELVION [Suspect]
     Active Substance: COAGULATION FACTOR IX RECOMBINANT HUMAN
     Indication: Factor IX deficiency
     Dosage: 4000 IU, QW
     Route: 065
     Dates: start: 202009
  2. IDELVION [Suspect]
     Active Substance: COAGULATION FACTOR IX RECOMBINANT HUMAN
     Indication: Factor IX deficiency
     Dosage: 4000 IU, QW
     Route: 065
     Dates: start: 202009
  3. SOFOSBUVIR [Concomitant]
     Active Substance: SOFOSBUVIR
  4. SIMEPREVIR [Concomitant]
     Active Substance: SIMEPREVIR
  5. ETORICOXIB [Concomitant]
     Active Substance: ETORICOXIB

REACTIONS (1)
  - Chondropathy [Unknown]
